FAERS Safety Report 4986412-6 (Version None)
Quarter: 2006Q2

REPORT INFORMATION
  Report Type: 
  Country: None (occurrence: None)
  Receive Date: 20060428
  Receipt Date: 20051205
  Transmission Date: 20061013
  Serious: Yes (Other)
  Sender: FDA-Public Use
  Company Number: US-MERCK-0512USA00841

PATIENT
  Age: 54 Year
  Sex: Male
  Weight: 89 kg

DRUGS (5)
  1. VIOXX [Suspect]
     Indication: OSTEOARTHRITIS
     Route: 048
     Dates: start: 20000501, end: 20040901
  2. VIOXX [Suspect]
     Indication: PAIN
     Route: 048
     Dates: start: 20000501, end: 20040901
  3. ATACAND [Concomitant]
     Route: 065
  4. TERAZOSIN HYDROCHLORIDE [Concomitant]
     Route: 065
  5. PREVACID [Concomitant]
     Route: 065

REACTIONS (5)
  - ABDOMINAL PAIN UPPER [None]
  - ANXIETY [None]
  - ASBESTOSIS [None]
  - BRONCHITIS ACUTE [None]
  - CEREBROVASCULAR ACCIDENT [None]
